FAERS Safety Report 17959978 (Version 1)
Quarter: 2020Q2

REPORT INFORMATION
  Report Type: Spontaneous
  Country: US (occurrence: US)
  Receive Date: 20200629
  Receipt Date: 20200629
  Transmission Date: 20200714
  Serious: Yes (Life-Threatening)
  Sender: FDA-Public Use
  Company Number: None

PATIENT
  Age: 31 Year
  Sex: Male
  Weight: 82 kg

DRUGS (1)
  1. INFLIXIMAB (INFLIXIMAB 100MG/VIL (PF) INJ) [Suspect]
     Active Substance: INFLIXIMAB
     Indication: HYPERSENSITIVITY
     Route: 042
     Dates: start: 20200113

REACTIONS (4)
  - Wheezing [None]
  - Rash [None]
  - Cough [None]
  - Anaphylactic reaction [None]

NARRATIVE: CASE EVENT DATE: 20200113
